FAERS Safety Report 9699485 (Version 1)
Quarter: 2013Q4

REPORT INFORMATION
  Report Type: Spontaneous
  Country: US (occurrence: US)
  Receive Date: 20131120
  Receipt Date: 20131120
  Transmission Date: 20140711
  Serious: No
  Sender: FDA-Public Use
  Company Number: US-TEVA-370719USA

PATIENT
  Age: 29 Year
  Sex: Female
  Weight: 65.38 kg

DRUGS (6)
  1. PARAGARD 380A [Suspect]
     Indication: CONTRACEPTION
     Route: 015
     Dates: start: 20121019, end: 20121115
  2. FISH OIL [Concomitant]
     Indication: NUTRITIONAL SUPPLEMENTATION
  3. MAGNESIUM [Concomitant]
     Indication: NUTRITIONAL SUPPLEMENTATION
  4. MULTIVITAMINS [Concomitant]
     Indication: NUTRITIONAL SUPPLEMENTATION
  5. CO Q 10 [Concomitant]
     Indication: NUTRITIONAL SUPPLEMENTATION
  6. ZYRTEC [Concomitant]

REACTIONS (1)
  - Device expulsion [Recovered/Resolved]
